FAERS Safety Report 21971483 (Version 4)
Quarter: 2023Q2

REPORT INFORMATION
  Report Type: Report from Study
  Country: US (occurrence: US)
  Receive Date: 20230209
  Receipt Date: 20230412
  Transmission Date: 20230722
  Serious: No
  Sender: FDA-Public Use
  Company Number: US-002147023-NVSC2023US029114

PATIENT
  Sex: Female

DRUGS (1)
  1. KISQALI [Suspect]
     Active Substance: RIBOCICLIB
     Indication: Product used for unknown indication
     Dosage: UNK
     Route: 048

REACTIONS (6)
  - Pain [Unknown]
  - Chromaturia [Unknown]
  - Nasopharyngitis [Unknown]
  - Blood calcium decreased [Unknown]
  - Nausea [Unknown]
  - Urinary tract infection [Unknown]
